FAERS Safety Report 4697892-8 (Version None)
Quarter: 2005Q2

REPORT INFORMATION
  Report Type: 
  Country: None (occurrence: None)
  Receive Date: 20050621
  Receipt Date: 20050607
  Transmission Date: 20051028
  Serious: Yes (Hospitalization)
  Sender: FDA-Public Use
  Company Number: 2005BI011140

PATIENT
  Age: 48 Year
  Sex: Female
  Weight: 53.978 kg

DRUGS (4)
  1. AVONEX [Suspect]
     Indication: MULTIPLE SCLEROSIS
     Dosage: 30 UG; QW; IM
     Route: 030
     Dates: start: 20021001, end: 20030901
  2. AVONEX [Suspect]
     Indication: MULTIPLE SCLEROSIS
     Dosage: 30 UG;QW; IM
     Route: 030
     Dates: start: 20030901, end: 20031201
  3. AVONEX [Suspect]
     Indication: MULTIPLE SCLEROSIS
     Dosage: 30 UG;QW; IM
     Route: 030
     Dates: start: 20040101, end: 20041101
  4. PREMARIN [Concomitant]

REACTIONS (11)
  - BLOOD POTASSIUM DECREASED [None]
  - DEPRESSION [None]
  - FLUSHING [None]
  - HEART RATE IRREGULAR [None]
  - HYPERTENSION [None]
  - INSOMNIA [None]
  - MITRAL VALVE PROLAPSE [None]
  - MUSCLE SPASMS [None]
  - OSTEOARTHRITIS [None]
  - TREMOR [None]
  - VEIN DISORDER [None]
